FAERS Safety Report 24377753 (Version 1)
Quarter: 2024Q3

REPORT INFORMATION
  Report Type: Spontaneous
  Country: GB (occurrence: GB)
  Receive Date: 20240930
  Receipt Date: 20240930
  Transmission Date: 20241017
  Serious: Yes (Other)
  Sender: AUROBINDO
  Company Number: GB-MHRA-WEBRADR-202409220018284410-NRVDY

PATIENT
  Age: 10 Decade
  Sex: Female

DRUGS (1)
  1. SUMATRIPTAN [Suspect]
     Active Substance: SUMATRIPTAN\SUMATRIPTAN SUCCINATE
     Indication: Migraine
     Dosage: 100 MILLIGRAM
     Route: 048

REACTIONS (5)
  - Hypertonic bladder [Unknown]
  - Myalgia [Unknown]
  - Nausea [Unknown]
  - Paraesthesia [Unknown]
  - Skin temperature [Unknown]
